FAERS Safety Report 8350049-1 (Version None)
Quarter: 2012Q2

REPORT INFORMATION
  Report Type: 
  Country: None (occurrence: None)
  Receive Date: 20120510
  Receipt Date: 20120430
  Transmission Date: 20120825
  Serious: Yes (Life-Threatening, Other)
  Sender: FDA-Public Use
  Company Number: BE-ACTELION-A-CH2012-65070

PATIENT
  Sex: Female
  Weight: 55 kg

DRUGS (2)
  1. TRACLEER [Suspect]
     Indication: DIGITAL ULCER
     Dosage: 250 MG, UNK
     Route: 048
     Dates: start: 20101201
  2. TRACLEER [Suspect]
     Dosage: 125 MG, BID
     Route: 048
     Dates: start: 20101001, end: 20101201

REACTIONS (1)
  - BREAST CANCER STAGE I [None]
